FAERS Safety Report 23244770 (Version 1)
Quarter: 2023Q4

REPORT INFORMATION
  Report Type: Spontaneous
  Country: FR (occurrence: FR)
  Receive Date: 20231130
  Receipt Date: 20231130
  Transmission Date: 20240109
  Serious: Yes (Life-Threatening, Other)
  Sender: FDA-Public Use
  Company Number: None

PATIENT
  Age: 25 Year
  Sex: Male

DRUGS (4)
  1. CLOZAPINE [Interacting]
     Active Substance: CLOZAPINE
     Indication: Schizophrenia
     Dates: end: 20231006
  2. CYAMEMAZINE [Interacting]
     Active Substance: CYAMEMAZINE
     Indication: Schizophrenia
     Dosage: 25 MG, SCORED FILM-COATED TABLET
     Dates: start: 20231006, end: 20231006
  3. ZYPREXA [Interacting]
     Active Substance: OLANZAPINE
     Indication: Schizophrenia
     Dosage: 10 MG, COATED TABLET
     Dates: start: 20231006, end: 20231006
  4. LOXAPINE [Interacting]
     Active Substance: LOXAPINE
     Indication: Schizophrenia
     Dosage: 100 MG, FILM-COATED TABLET
     Dates: start: 20231005, end: 20231006

REACTIONS (4)
  - Electrocardiogram QT prolonged [Recovered/Resolved]
  - Trismus [Recovered/Resolved]
  - Drug interaction [Recovered/Resolved]
  - Dyskinesia [Recovered/Resolved]

NARRATIVE: CASE EVENT DATE: 20231005
